FAERS Safety Report 14278798 (Version 1)
Quarter: 2017Q4

REPORT INFORMATION
  Report Type: Spontaneous
  Country: US (occurrence: US)
  Receive Date: 20171212
  Receipt Date: 20171212
  Transmission Date: 20180321
  Serious: Yes (Hospitalization, Other)
  Sender: FDA-Public Use
  Company Number: US-MYLANLABS-2017M1076906

PATIENT
  Age: 61 Year
  Sex: Female

DRUGS (2)
  1. PRASUGREL. [Suspect]
     Active Substance: PRASUGREL
     Indication: CORONARY ARTERY DISEASE
     Dosage: UNK
     Route: 065
  2. ASPIRIN                            /00002701/ [Suspect]
     Active Substance: ASPIRIN
     Indication: CORONARY ARTERY DISEASE
     Dosage: UNK
     Route: 065

REACTIONS (2)
  - Haemothorax [Recovering/Resolving]
  - Pleural effusion [Recovered/Resolved]
